FAERS Safety Report 20255672 (Version 2)
Quarter: 2022Q1

REPORT INFORMATION
  Report Type: Report from Study
  Country: IT (occurrence: IT)
  Receive Date: 20211230
  Receipt Date: 20220207
  Transmission Date: 20220423
  Serious: Yes (Hospitalization)
  Sender: FDA-Public Use
  Company Number: IT-TEVA-2021-IT-1992936

PATIENT
  Sex: Female

DRUGS (1)
  1. RISEDRONIC ACID [Suspect]
     Active Substance: RISEDRONIC ACID
     Indication: Product used for unknown indication
     Dosage: MORE THAN 4 YEARS USE
     Route: 065

REACTIONS (2)
  - Periprosthetic fracture [Unknown]
  - Atypical femur fracture [Unknown]
